FAERS Safety Report 21620009 (Version 3)
Quarter: 2023Q2

REPORT INFORMATION
  Report Type: Report from Study
  Country: CN (occurrence: None)
  Receive Date: 20221121
  Receipt Date: 20230418
  Transmission Date: 20230722
  Serious: Yes (Hospitalization)
  Sender: FDA-Public Use
  Company Number: CN-ROCHE-3140157

PATIENT
  Sex: Male
  Weight: 76 kg

DRUGS (13)
  1. PLACEBO [Suspect]
     Active Substance: UNSPECIFIED INGREDIENT
     Indication: Small cell lung cancer
     Dosage: ON 08/JUN/2022, MOST RECENT DOSE PRIOR TO SAE WAS ADMINISTERED.
     Route: 041
     Dates: start: 20220407, end: 20220808
  2. ATEZOLIZUMAB [Suspect]
     Active Substance: ATEZOLIZUMAB
     Indication: Small cell lung cancer
     Dosage: ON 08/JUN/2022, MOST RECENT DOSE OF ATEZOLIZUMAB PRIOR TO SAE WAS ADMINISTERED.
     Route: 041
     Dates: start: 20220407, end: 20220808
  3. DEXAMETHASONE SODIUM PHOSPHATE [Concomitant]
     Active Substance: DEXAMETHASONE SODIUM PHOSPHATE
     Route: 042
     Dates: start: 20220712, end: 20220716
  4. DEXAMETHASONE SODIUM PHOSPHATE [Concomitant]
     Active Substance: DEXAMETHASONE SODIUM PHOSPHATE
     Dosage: SUBSEQUENT DOSE ON 12/AUG/2022 TO 13/AUG/2022,
     Route: 042
     Dates: start: 20220718, end: 20220728
  5. AMLODIPINE BESYLATE [Concomitant]
     Active Substance: AMLODIPINE BESYLATE
     Dates: start: 202102
  6. MANNITOL [Concomitant]
     Active Substance: MANNITOL
     Dates: start: 20220712, end: 20220715
  7. MANNITOL [Concomitant]
     Active Substance: MANNITOL
     Dosage: SUBSEQUENT DOSE ON 12/AUG/2022 TO 13/AUG/2022,
     Dates: start: 20220718, end: 20220728
  8. ESOMEPRAZOLE SODIUM [Concomitant]
     Active Substance: ESOMEPRAZOLE SODIUM
     Dates: start: 20220712, end: 20220715
  9. ESOMEPRAZOLE SODIUM [Concomitant]
     Active Substance: ESOMEPRAZOLE SODIUM
     Dates: start: 20220718, end: 20220728
  10. ADENOSINE [Concomitant]
     Active Substance: ADENOSINE
     Dosage: TOTAL DAILY DOSE: 40MG,
     Dates: start: 20220823, end: 20220827
  11. ACEGLUTAMIDE [Concomitant]
     Active Substance: ACEGLUTAMIDE
     Dosage: TOTAL DAILY DOSE: 0.5G
     Dates: start: 20220823, end: 20220827
  12. CALCIUM CARBONATE\CHOLECALCIFEROL [Concomitant]
     Active Substance: CALCIUM CARBONATE\CHOLECALCIFEROL
     Dosage: TOTAL DAILY DOSE: 1TABLET
     Dates: start: 20220812
  13. OMEPRAZOLE SODIUM [Concomitant]
     Active Substance: OMEPRAZOLE SODIUM
     Dates: start: 20220812, end: 20220816

REACTIONS (2)
  - Myocardial injury [Recovered/Resolved]
  - Pneumonitis [Recovered/Resolved]

NARRATIVE: CASE EVENT DATE: 20220712
